FAERS Safety Report 10296215 (Version 1)
Quarter: 2014Q3

REPORT INFORMATION
  Report Type: Spontaneous
  Country: US (occurrence: None)
  Receive Date: 20140708
  Receipt Date: 20140708
  Transmission Date: 20150326
  Serious: Yes (Hospitalization, Other)
  Sender: FDA-Public Use
  Company Number: None

PATIENT
  Age: 68 Year
  Sex: Female
  Weight: 54.43 kg

DRUGS (2)
  1. TARCEVA [Suspect]
     Active Substance: ERLOTINIB HYDROCHLORIDE
     Indication: SMALL CELL LUNG CANCER
     Dosage: 1 PILL DAILY, ONCE DAILY, TAKEN BY MOUTH
     Route: 048
  2. TARCEVA [Suspect]
     Active Substance: ERLOTINIB HYDROCHLORIDE
     Indication: NEOPLASM MALIGNANT
     Dosage: 1 PILL DAILY, ONCE DAILY, TAKEN BY MOUTH
     Route: 048

REACTIONS (2)
  - Hydrocephalus [None]
  - Confusional state [None]

NARRATIVE: CASE EVENT DATE: 20140608
